FAERS Safety Report 10228463 (Version 1)
Quarter: 2014Q2

REPORT INFORMATION
  Report Type: Spontaneous
  Country: US (occurrence: US)
  Receive Date: 20140610
  Receipt Date: 20140610
  Transmission Date: 20141212
  Serious: Yes (Hospitalization)
  Sender: FDA-Public Use
  Company Number: US-BAYER-2014-083790

PATIENT
  Age: 18 Year
  Sex: Female
  Weight: 98.41 kg

DRUGS (2)
  1. YAZ [Suspect]
     Indication: CONTRACEPTION
     Dosage: UNK
  2. VICODIN [Concomitant]

REACTIONS (1)
  - Jugular vein thrombosis [Recovered/Resolved]
